FAERS Safety Report 10026848 (Version 2)
Quarter: 2014Q2

REPORT INFORMATION
  Report Type: Spontaneous
  Country: GB (occurrence: GB)
  Receive Date: 20140321
  Receipt Date: 20140509
  Transmission Date: 20141212
  Serious: Yes (Other)
  Sender: FDA-Public Use
  Company Number: GB-ROCHE-1368859

PATIENT
  Age: 77 Year
  Sex: Male

DRUGS (8)
  1. LUCENTIS [Suspect]
     Indication: RETINAL VEIN OCCLUSION
     Route: 050
     Dates: start: 20140102
  2. LUCENTIS [Suspect]
     Route: 050
     Dates: start: 20140205
  3. LUCENTIS [Suspect]
     Route: 050
  4. DIGOXIN [Concomitant]
  5. SOTALOL [Concomitant]
  6. FUROSEMIDE [Concomitant]
  7. FLUVASTATIN [Concomitant]
  8. GTN [Concomitant]

REACTIONS (1)
  - Acute myocardial infarction [Recovered/Resolved]
